FAERS Safety Report 5695893-4 (Version None)
Quarter: 2008Q2

REPORT INFORMATION
  Report Type: 
  Country: None (occurrence: None)
  Receive Date: 20080407
  Receipt Date: 20080327
  Transmission Date: 20081010
  Serious: Yes (Hospitalization, Other)
  Sender: FDA-Public Use
  Company Number: DE-JNJFOC-20080303494

PATIENT
  Age: 41 Year
  Sex: Female
  Weight: 53 kg

DRUGS (4)
  1. REMICADE [Suspect]
     Route: 042
  2. REMICADE [Suspect]
     Indication: COLITIS ULCERATIVE
     Route: 042
  3. METHOTREXATE [Suspect]
     Indication: COLITIS ULCERATIVE
  4. PREDNISOLONE [Suspect]
     Indication: COLITIS ULCERATIVE

REACTIONS (5)
  - BONE MARROW DISORDER [None]
  - DRUG TOXICITY [None]
  - MENINGITIS LISTERIA [None]
  - PANCYTOPENIA [None]
  - PHOTOSENSITIVITY REACTION [None]
